FAERS Safety Report 9530928 (Version 1)
Quarter: 2013Q2

REPORT INFORMATION
  Report Type: Spontaneous
  Country: US (occurrence: None)
  Receive Date: 20130418
  Receipt Date: 20130418
  Transmission Date: 20140414
  Serious: Yes (Other)
  Sender: FDA-Public Use
  Company Number: 1301USA002941

PATIENT
  Age: 20 Year
  Sex: Male

DRUGS (1)
  1. SINGULAIR (MONTELUKAST SODIUM) TABLET [Suspect]
     Indication: ASTHMA
     Route: 048

REACTIONS (3)
  - Initial insomnia [None]
  - Poor quality sleep [None]
  - Fatigue [None]
